FAERS Safety Report 6700391-2 (Version None)
Quarter: 2010Q2

REPORT INFORMATION
  Report Type: 
  Country: None (occurrence: None)
  Receive Date: 20100428
  Receipt Date: 20100419
  Transmission Date: 20101027
  Serious: No
  Sender: FDA-Public Use
  Company Number: US-CEPHALON-2010002258

PATIENT
  Sex: Female

DRUGS (2)
  1. FENTORA [Suspect]
     Indication: SPINAL COLUMN STENOSIS
     Route: 002
  2. OPANA [Concomitant]
     Indication: SPINAL COLUMN STENOSIS

REACTIONS (1)
  - MEDICATION ERROR [None]
